FAERS Safety Report 23776715 (Version 1)
Quarter: 2024Q2

REPORT INFORMATION
  Report Type: Spontaneous
  Country: ES (occurrence: ES)
  Receive Date: 20240424
  Receipt Date: 20240424
  Transmission Date: 20240716
  Serious: Yes (Other)
  Sender: FDA-Public Use
  Company Number: ES-JNJFOC-20240455615

PATIENT

DRUGS (3)
  1. IMBRUVICA [Suspect]
     Active Substance: IBRUTINIB
     Indication: Marginal zone lymphoma
     Route: 048
  2. PARSACLISIB [Suspect]
     Active Substance: PARSACLISIB
     Indication: Follicular lymphoma
     Route: 048
  3. PARSACLISIB [Suspect]
     Active Substance: PARSACLISIB
     Indication: Follicular lymphoma
     Dosage: FOR 8 WEEKS
     Route: 048

REACTIONS (16)
  - Dermatitis exfoliative [Unknown]
  - Stomatitis [Unknown]
  - Anaemia [Unknown]
  - Thrombocytopenia [Unknown]
  - Pneumonia [Unknown]
  - Atrial fibrillation [Unknown]
  - Diarrhoea [Unknown]
  - Alanine aminotransferase increased [Unknown]
  - Squamous cell carcinoma of skin [Unknown]
  - Pericardial effusion [Unknown]
  - Blood creatinine increased [Unknown]
  - Cough [Unknown]
  - Pyrexia [Unknown]
  - Off label use [Unknown]
  - Neutropenia [Unknown]
  - Aspartate aminotransferase increased [Unknown]
